FAERS Safety Report 5386988-3 (Version None)
Quarter: 2007Q3

REPORT INFORMATION
  Report Type: 
  Country: None (occurrence: None)
  Receive Date: 20070713
  Receipt Date: 20070705
  Transmission Date: 20080115
  Serious: Yes (Hospitalization, Other)
  Sender: FDA-Public Use
  Company Number: CM-MERCK-0707USA00768

PATIENT
  Age: 35 Year
  Sex: Male
  Weight: 58 kg

DRUGS (4)
  1. STROMECTOL [Suspect]
     Route: 048
     Dates: start: 20070629, end: 20070629
  2. AMOXICILLIN [Concomitant]
     Route: 065
  3. ACETAMINOPHEN [Concomitant]
     Route: 065
  4. GASTRIDIN [Concomitant]
     Route: 065

REACTIONS (5)
  - AGITATION [None]
  - ASTHENIA [None]
  - COMA [None]
  - MENTAL DISORDER [None]
  - PYREXIA [None]
